FAERS Safety Report 17295719 (Version 1)
Quarter: 2020Q1

REPORT INFORMATION
  Report Type: Spontaneous
  Country: US (occurrence: US)
  Receive Date: 20200121
  Receipt Date: 20200121
  Transmission Date: 20200409
  Serious: Yes (Hospitalization)
  Sender: FDA-Public Use
  Company Number: US-BEH-2020111901

PATIENT
  Age: 5 Year
  Sex: Male

DRUGS (1)
  1. HIZENTRA [Suspect]
     Active Substance: HUMAN IMMUNOGLOBULIN G
     Indication: IMMUNODEFICIENCY COMMON VARIABLE
     Route: 065

REACTIONS (6)
  - Bronchitis [Unknown]
  - Injection site swelling [Unknown]
  - Ill-defined disorder [Unknown]
  - Weight decreased [Unknown]
  - Infection [Unknown]
  - Failure to thrive [Unknown]
